FAERS Safety Report 11826215 (Version 1)
Quarter: 2015Q4

REPORT INFORMATION
  Report Type: Spontaneous
  Country: CN (occurrence: CN)
  Receive Date: 20151211
  Receipt Date: 20151211
  Transmission Date: 20160305
  Serious: Yes (Life-Threatening, Hospitalization)
  Sender: FDA-Public Use
  Company Number: PHHY2015CN159606

PATIENT
  Age: 54 Year
  Sex: Male

DRUGS (3)
  1. TASIGNA [Suspect]
     Active Substance: NILOTINIB
     Indication: GASTROINTESTINAL STROMAL TUMOUR
     Dosage: UNK
     Route: 065
     Dates: end: 201101
  2. SUNITINIB MALATE. [Suspect]
     Active Substance: SUNITINIB MALATE
     Indication: GASTROINTESTINAL STROMAL TUMOUR
     Route: 065
  3. GLIVEC [Suspect]
     Active Substance: IMATINIB MESYLATE
     Indication: GASTROINTESTINAL STROMAL TUMOUR
     Dosage: UNK
     Route: 065
     Dates: end: 201006

REACTIONS (11)
  - Peritoneal haemorrhage [Recovering/Resolving]
  - Pyrexia [Recovering/Resolving]
  - Small intestinal perforation [Recovering/Resolving]
  - Tumour rupture [Recovering/Resolving]
  - Neoplasm malignant [Recovered/Resolved]
  - Gene mutation [Unknown]
  - Gastrointestinal stromal tumour [Recovering/Resolving]
  - Malignant neoplasm progression [Recovering/Resolving]
  - Abdominal pain [Recovering/Resolving]
  - Abdominal distension [Recovering/Resolving]
  - Small intestine carcinoma [Recovering/Resolving]
